FAERS Safety Report 4948772-1 (Version None)
Quarter: 2006Q1

REPORT INFORMATION
  Report Type: 
  Country: None (occurrence: None)
  Receive Date: 20060315
  Receipt Date: 20060228
  Transmission Date: 20060701
  Serious: Yes (Hospitalization, Other)
  Sender: FDA-Public Use
  Company Number: 2118

PATIENT
  Age: 51 Year
  Sex: Male

DRUGS (10)
  1. AVINZA [Suspect]
     Indication: BACK PAIN
     Dosage: 420 MG DAILY PO
     Route: 048
     Dates: start: 20060210, end: 20060301
  2. ACETAMINOPHEN [Concomitant]
  3. ALBUTEROL [Concomitant]
  4. BITARTRATE AND ACETAMINOPHEN [Concomitant]
  5. DICLOFENAC SODIUM AND MISOPROSTOL [Concomitant]
  6. FLUTICASONE AND SALMETEROL [Concomitant]
  7. IRON [Concomitant]
  8. OMEPRAZOLE [Concomitant]
  9. TAMSULOSIN HCL [Concomitant]
  10. VENLAFAXINE HCL [Concomitant]

REACTIONS (3)
  - LOSS OF CONSCIOUSNESS [None]
  - OVERDOSE [None]
  - RENAL FAILURE [None]
